FAERS Safety Report 9097233 (Version 2)
Quarter: 2013Q1

REPORT INFORMATION
  Report Type: Spontaneous
  Country: US (occurrence: US)
  Receive Date: 20130212
  Receipt Date: 20130215
  Transmission Date: 20140127
  Serious: Yes (Hospitalization, Other)
  Sender: FDA-Public Use
  Company Number: US-PFIZER INC-2013052788

PATIENT
  Age: 58 Year
  Sex: Female
  Weight: 34.24 kg

DRUGS (6)
  1. DETROL LA [Suspect]
     Indication: CYSTITIS INTERSTITIAL
     Dosage: 4 MG, 1X/DAY
     Route: 048
  2. DETROL LA [Suspect]
     Indication: BLADDER SPASM
  3. NEURONTIN [Suspect]
     Indication: NERVE INJURY
     Dosage: 300 MG, 3X/DAY
     Route: 048
  4. NEURONTIN [Suspect]
     Indication: NEURALGIA
     Dosage: 300 MG, 2X/DAY
  5. NEURONTIN [Suspect]
     Indication: CYSTITIS INTERSTITIAL
  6. AMITRIPTYLINE [Concomitant]
     Indication: CYSTITIS INTERSTITIAL
     Dosage: 25 MG, 3X/DAY

REACTIONS (4)
  - Pneumonia [Unknown]
  - Influenza [Unknown]
  - Diarrhoea [Unknown]
  - Weight decreased [Unknown]
